FAERS Safety Report 5168459-2 (Version None)
Quarter: 2006Q4

REPORT INFORMATION
  Report Type: 
  Country: None (occurrence: None)
  Receive Date: 20061208
  Receipt Date: 20061128
  Transmission Date: 20070319
  Serious: Yes (Death)
  Sender: FDA-Public Use
  Company Number: CA-ROCHE-472906

PATIENT
  Age: 88 Year
  Sex: Female
  Weight: 80 kg

DRUGS (21)
  1. TAMIFLU [Suspect]
     Indication: DRUG USE FOR UNKNOWN INDICATION
     Route: 048
  2. NITROGLYCERIN [Concomitant]
     Dosage: FORM REPORTED AS SPR (SPRAY).
  3. NOVOLIN-TORONTO [Concomitant]
     Route: 058
  4. ACTONEL [Concomitant]
  5. ASPIRIN [Concomitant]
     Route: 048
  6. METOPROLOL SUCCINATE [Concomitant]
     Route: 048
  7. NORTRIPTYLINE HCL [Concomitant]
     Route: 048
  8. PREDNISONE TAB [Concomitant]
  9. SYNTHROID [Concomitant]
     Route: 048
  10. ASCORBIC ACID [Concomitant]
     Route: 048
  11. ZINC [Concomitant]
  12. HYDROMORPHONE HCL [Concomitant]
  13. PARIET [Concomitant]
     Route: 048
  14. MULTIVITAMIN NOS [Concomitant]
     Route: 048
  15. FUROSEMIDE [Concomitant]
     Route: 048
  16. AMIODARONE HCL [Concomitant]
     Route: 048
  17. HYDROMORPH CONTIN [Concomitant]
     Dosage: FORM REPORTED AS SRC (SUSTAINED-RELEASE CAPSULE).
     Route: 048
  18. NOVOLIN 70/30 [Concomitant]
     Dosage: REPORTED AS NOVOLIN 30/70.
     Route: 058
  19. NITRO-DUR [Concomitant]
     Dosage: FORM REPORTED AS TPD.
  20. LORAZEPAM [Concomitant]
     Route: 048
  21. LACTULOSE [Concomitant]
     Route: 048

REACTIONS (3)
  - ABDOMINAL PAIN [None]
  - CARDIAC ARREST [None]
  - STOMACH DISCOMFORT [None]
